FAERS Safety Report 6439528-1 (Version None)
Quarter: 2009Q4

REPORT INFORMATION
  Report Type: 
  Country: None (occurrence: None)
  Receive Date: 20091113
  Receipt Date: 20091110
  Transmission Date: 20100525
  Serious: Yes (Other)
  Sender: FDA-Public Use
  Company Number: A0816403A

PATIENT
  Age: 54 Year
  Sex: Male

DRUGS (1)
  1. AVANDIA [Suspect]
     Indication: DIABETES MELLITUS
     Dosage: 8MG TWICE PER DAY
     Route: 048
     Dates: start: 20030201, end: 20060701

REACTIONS (3)
  - ANGINA PECTORIS [None]
  - BLOOD PRESSURE INADEQUATELY CONTROLLED [None]
  - CARDIAC FAILURE [None]
